FAERS Safety Report 16394440 (Version 1)
Quarter: 2019Q2

REPORT INFORMATION
  Report Type: Report from Study
  Country: US (occurrence: US)
  Receive Date: 20190605
  Receipt Date: 20190605
  Transmission Date: 20190711
  Serious: No
  Sender: FDA-Public Use
  Company Number: PHEH2019US022832

PATIENT
  Sex: Female

DRUGS (2)
  1. ENTRESTO [Suspect]
     Active Substance: SACUBITRIL\VALSARTAN
     Indication: PRODUCT USED FOR UNKNOWN INDICATION
     Dosage: UNK UNK, BID
     Route: 048
  2. CEFZIL [Suspect]
     Active Substance: CEFPROZIL
     Indication: URINARY TRACT INFECTION
     Route: 065

REACTIONS (5)
  - Joint swelling [Unknown]
  - Tendonitis [Unknown]
  - Urinary tract infection [Unknown]
  - Pain in extremity [Unknown]
  - Peripheral swelling [Unknown]
